FAERS Safety Report 10111351 (Version 1)
Quarter: 2014Q2

REPORT INFORMATION
  Report Type: Spontaneous
  Country: US (occurrence: None)
  Receive Date: 20140421
  Receipt Date: 20140421
  Transmission Date: 20141212
  Serious: Yes (Other)
  Sender: FDA-Public Use
  Company Number: AEGR000275

PATIENT
  Age: 79 Year
  Sex: Male
  Weight: 72.1 kg

DRUGS (6)
  1. JUXTAPID (LOMITAPIDE) CAPSULE, 5MG [Suspect]
     Indication: HYPERCHOLESTEROLAEMIA
     Route: 048
     Dates: start: 20131122
  2. CARVEDILOL (CARVEDILOL) [Concomitant]
  3. NAMENDA (MEMANTINE HYDROCHLORIDE) [Concomitant]
  4. ASPIRIN (ACETYLSALICYLIC ACID) [Concomitant]
  5. VITAMIN B12 (CYANOCOBALAMIN) [Concomitant]
  6. MULTIVITAMIN (VITAMINS NOS) [Concomitant]

REACTIONS (3)
  - Gastrointestinal disorder [None]
  - Blood pressure increased [None]
  - Off label use [None]
